FAERS Safety Report 24608300 (Version 2)
Quarter: 2024Q4

REPORT INFORMATION
  Report Type: Report from Study
  Country: US (occurrence: US)
  Receive Date: 20241112
  Receipt Date: 20241204
  Transmission Date: 20250114
  Serious: Yes (Hospitalization, Other)
  Sender: pharmaAND
  Company Number: US-Pharmaand-2024001164

PATIENT
  Sex: Female

DRUGS (1)
  1. RUBRACA [Suspect]
     Active Substance: RUCAPARIB CAMSYLATE
     Indication: Ovarian cancer
     Dosage: 400MG TWICE DAILY
     Route: 048
     Dates: start: 20240921

REACTIONS (3)
  - Pulmonary thrombosis [Unknown]
  - Thrombosis [Unknown]
  - Product use issue [Recovered/Resolved]
